FAERS Safety Report 10857385 (Version 1)
Quarter: 2015Q1

REPORT INFORMATION
  Report Type: Spontaneous
  Country: US (occurrence: US)
  Receive Date: 20150223
  Receipt Date: 20150223
  Transmission Date: 20150721
  Serious: Yes (Other)
  Sender: FDA-Public Use
  Company Number: US-CELGENEUS-USA-2014103350

PATIENT
  Sex: Female
  Weight: 57.66 kg

DRUGS (1)
  1. REVLIMID [Suspect]
     Active Substance: LENALIDOMIDE
     Indication: ESSENTIAL THROMBOCYTHAEMIA
     Dosage: 2.5 MILLIGRAM
     Route: 048
     Dates: start: 20140611

REACTIONS (2)
  - Peripheral swelling [Recovered/Resolved]
  - Benign neoplasm of skin [Recovered/Resolved]
